FAERS Safety Report 5623666-7 (Version None)
Quarter: 2008Q1

REPORT INFORMATION
  Report Type: 
  Country: None (occurrence: None)
  Receive Date: 20080129
  Receipt Date: 20070329
  Transmission Date: 20080703
  Serious: Yes (Other)
  Sender: FDA-Public Use
  Company Number: WAES 0703USA05634

PATIENT
  Sex: Male

DRUGS (2)
  1. PRIMAXIN [Suspect]
     Indication: INFECTION
     Dosage: 500 MG/Q8H/IV
     Route: 042
     Dates: end: 20070329
  2. DAPTOMYCIN [Concomitant]

REACTIONS (2)
  - CONVULSION [None]
  - DYSTONIA [None]
